FAERS Safety Report 10831542 (Version 1)
Quarter: 2015Q1

REPORT INFORMATION
  Report Type: Report from Study
  Country: US (occurrence: US)
  Receive Date: 20150219
  Receipt Date: 20150219
  Transmission Date: 20150721
  Serious: No
  Sender: FDA-Public Use
  Company Number: US-ABBVIE-14P-163-1193376-00

PATIENT
  Age: 34 Year
  Sex: Female

DRUGS (4)
  1. HUMIRA [Suspect]
     Active Substance: ADALIMUMAB
     Dates: start: 20140111, end: 20140111
  2. HUMIRA [Suspect]
     Active Substance: ADALIMUMAB
     Indication: PSORIASIS
     Dates: start: 20131221, end: 20131221
  3. HUMIRA [Suspect]
     Active Substance: ADALIMUMAB
     Dates: start: 20131228, end: 20131228
  4. HUMIRA [Suspect]
     Active Substance: ADALIMUMAB
     Dates: start: 20140201

REACTIONS (6)
  - Psoriasis [Not Recovered/Not Resolved]
  - Injection site erythema [Recovered/Resolved]
  - Injection site erythema [Unknown]
  - Inappropriate schedule of drug administration [Unknown]
  - Inappropriate schedule of drug administration [Not Recovered/Not Resolved]
  - Discomfort [Not Recovered/Not Resolved]

NARRATIVE: CASE EVENT DATE: 20140104
